FAERS Safety Report 7378097-9 (Version None)
Quarter: 2011Q1

REPORT INFORMATION
  Report Type: 
  Country: None (occurrence: None)
  Receive Date: 20110317
  Receipt Date: 20110303
  Transmission Date: 20110831
  Serious: Yes (Death)
  Sender: FDA-Public Use
  Company Number: TPA2011A00950

PATIENT
  Age: 82 Year
  Sex: Female

DRUGS (11)
  1. LANTUS INSULIN (INSULIN) [Concomitant]
  2. DOCUSATE SODIUM (DOCUSATE SODIUM) [Concomitant]
  3. TYLENOL #3 (PARACETAMOL) [Concomitant]
  4. TAZTIA-XT (DILTIAZEM HYDROCHLORIDE) [Concomitant]
  5. HUMALOG [Concomitant]
  6. ULORIC [Suspect]
     Dates: start: 20090630
  7. MULTIVITAMIN [Concomitant]
  8. LIPITOR [Concomitant]
  9. BENAZEPRIL HYDROCHLORIDE [Concomitant]
  10. ALLOPURINOL [Concomitant]
  11. LASIX [Concomitant]

REACTIONS (1)
  - INFECTION [None]
